FAERS Safety Report 18150404 (Version 5)
Quarter: 2021Q4

REPORT INFORMATION
  Report Type: Report from Study
  Country: US (occurrence: US)
  Receive Date: 20200814
  Receipt Date: 20211021
  Transmission Date: 20220303
  Serious: Yes (Life-Threatening, Hospitalization)
  Sender: FDA-Public Use
  Company Number: US-ROCHE-2656036

PATIENT
  Age: 58 Year
  Sex: Female
  Weight: 102.4 kg

DRUGS (20)
  1. OBINUTUZUMAB [Suspect]
     Active Substance: OBINUTUZUMAB
     Indication: Follicular lymphoma
     Dosage: DAY 1, DATE OF LAST DOSE: 30/JUL/2020, LAST CYCLE NO: 1, CYCLE 1, DAY 1 OBINUTUZUMAB 100 MG AND CYCL
     Route: 042
     Dates: start: 20200729
  2. OBINUTUZUMAB [Suspect]
     Active Substance: OBINUTUZUMAB
     Dosage: DAY 2?ON 26/AUG/2020, SHE RECEIVED THE MOST RECENT DOSE OF OBINUTUZUMAB PRIOR TO EVENT ONSET OF INTR
     Route: 042
  3. BENDAMUSTINE [Suspect]
     Active Substance: BENDAMUSTINE
     Indication: Follicular lymphoma
     Dosage: DATE OF LAST DOSE: 30/JUL/2020, LAST CYCLE NO: 1, [BENDAMUSTINE 90 MG/M2 INTRAVENOUS ON DAYS 1 AND 2
     Route: 042
     Dates: start: 20200729
  4. VENETOCLAX [Suspect]
     Active Substance: VENETOCLAX
     Indication: Follicular lymphoma
     Dosage: ON 29/AUG/2020, SHE RECEIVED THE MOST RECENT DOSE OF VENETOCLAX PRIOR TO EVENT ONSET OF INTRACTABLE
     Route: 048
     Dates: start: 20200826
  5. LIDOCAINE [Concomitant]
     Active Substance: LIDOCAINE
  6. ZESTRIL [Concomitant]
     Active Substance: LISINOPRIL
     Route: 048
  7. ZOVIRAX [Concomitant]
     Active Substance: ACYCLOVIR
  8. NORVASC [Concomitant]
     Active Substance: AMLODIPINE BESYLATE
  9. NORVASC [Concomitant]
     Active Substance: AMLODIPINE BESYLATE
     Route: 048
     Dates: start: 20200807
  10. LOVENOX [Concomitant]
     Active Substance: ENOXAPARIN SODIUM
  11. BACTRIM DS [Concomitant]
     Active Substance: SULFAMETHOXAZOLE\TRIMETHOPRIM
     Dosage: M-W-F
  12. BACTRIM DS [Concomitant]
     Active Substance: SULFAMETHOXAZOLE\TRIMETHOPRIM
     Dosage: 800-160 MG PER TABLET; M-W-F
     Route: 048
     Dates: start: 20200807
  13. DEXTROSE [Concomitant]
     Active Substance: DEXTROSE
  14. LACTATED RINGERS SOLUTION [Concomitant]
     Active Substance: CALCIUM CHLORIDE\POTASSIUM CHLORIDE\SODIUM CHLORIDE\SODIUM LACTATE
  15. CLARITIN [Concomitant]
     Active Substance: LORATADINE
     Route: 048
     Dates: start: 20200807
  16. SODIUM CHLORIDE [Concomitant]
     Active Substance: SODIUM CHLORIDE
  17. PHENERGAN [Concomitant]
     Active Substance: PROMETHAZINE HYDROCHLORIDE
     Route: 048
     Dates: start: 20200519
  18. MAGNESIUM OXIDE [Concomitant]
     Active Substance: MAGNESIUM OXIDE
     Route: 048
     Dates: start: 20200807
  19. FEBUXOSTAT [Concomitant]
     Active Substance: FEBUXOSTAT
     Route: 048
     Dates: start: 20200807
  20. PEGFILGRASTIM [Concomitant]
     Active Substance: PEGFILGRASTIM
     Dates: start: 20200827

REACTIONS (4)
  - Enteritis [Recovered/Resolved]
  - Nausea [Recovered/Resolved]
  - Vomiting [Recovered/Resolved]
  - Hypertensive emergency [Recovered/Resolved]

NARRATIVE: CASE EVENT DATE: 20200802
